FAERS Safety Report 6339844-8 (Version None)
Quarter: 2009Q3

REPORT INFORMATION
  Report Type: 
  Country: None (occurrence: None)
  Receive Date: 20090903
  Receipt Date: 20090825
  Transmission Date: 20100115
  Serious: Yes (Other)
  Sender: FDA-Public Use
  Company Number: PHHY2008DE30077

PATIENT
  Age: 69 Year
  Sex: Male

DRUGS (6)
  1. PROVAS COMP [Suspect]
     Dosage: 80/12.5 MG
  2. PROVAS COMP [Suspect]
     Dosage: HALF DOSAGE
  3. BACLOFEN [Concomitant]
  4. UBRETID [Concomitant]
  5. LYRICA [Concomitant]
  6. INHALATION THERAPY [Concomitant]

REACTIONS (1)
  - BLOOD CREATINE PHOSPHOKINASE INCREASED [None]
